FAERS Safety Report 15254882 (Version 1)
Quarter: 2018Q3

REPORT INFORMATION
  Report Type: Spontaneous
  Country: US (occurrence: US)
  Receive Date: 20180717
  Receipt Date: 20180717
  Transmission Date: 20181010
  Serious: Yes (Hospitalization, Other)
  Sender: FDA-Public Use
  Company Number: None

PATIENT
  Age: 53 Year
  Sex: Female

DRUGS (2)
  1. DA?EPOCH?R [Suspect]
     Active Substance: CYCLOPHOSPHAMIDE\DOXORUBICIN\ETOPOSIDE\PREDNISONE\RITUXIMAB\VINCRISTINE
     Dates: start: 20180622, end: 20180629
  2. IBRUTINIB [Suspect]
     Active Substance: IBRUTINIB
     Indication: DIFFUSE LARGE B-CELL LYMPHOMA
     Dosage: FOR 7  DAYS
     Dates: start: 20180622, end: 20180629

REACTIONS (7)
  - Lung consolidation [None]
  - Drug dose omission [None]
  - Bronchial secretion retention [None]
  - Bronchopulmonary aspergillosis [None]
  - Infection [None]
  - Oncologic complication [None]
  - Nervous system disorder [None]

NARRATIVE: CASE EVENT DATE: 20180712
